FAERS Safety Report 8059162-X (Version None)
Quarter: 2012Q1

REPORT INFORMATION
  Report Type: 
  Country: None (occurrence: None)
  Receive Date: 20120113
  Receipt Date: 20120110
  Transmission Date: 20120608
  Serious: Yes (Other)
  Sender: FDA-Public Use
  Company Number: ADR-2011-11669

PATIENT
  Sex: Male

DRUGS (2)
  1. LIORESAL [Suspect]
     Indication: MUSCLE SPASTICITY
     Dosage: 46 MCG/DAY
  2. LIORESAL [Suspect]
     Indication: MULTIPLE SCLEROSIS
     Dosage: 46 MCG/DAY

REACTIONS (4)
  - MUSCLE SPASTICITY [None]
  - SWELLING [None]
  - FATIGUE [None]
  - MEDICAL DEVICE COMPLICATION [None]
